FAERS Safety Report 12435577 (Version 1)
Quarter: 2016Q2

REPORT INFORMATION
  Report Type: Spontaneous
  Country: US (occurrence: US)
  Receive Date: 20160603
  Receipt Date: 20160603
  Transmission Date: 20160815
  Serious: No
  Sender: FDA-Public Use
  Company Number: US-ROCHE-1685320

PATIENT
  Age: 59 Year
  Sex: Female

DRUGS (4)
  1. LOZOL [Concomitant]
     Active Substance: INDAPAMIDE
  2. TOPROL XL [Concomitant]
     Active Substance: METOPROLOL SUCCINATE
  3. KLONOPIN [Suspect]
     Active Substance: CLONAZEPAM
     Indication: HYPERTENSION
     Route: 065
  4. CLONAZEPAM. [Suspect]
     Active Substance: CLONAZEPAM
     Indication: HYPERTENSION
     Route: 065
     Dates: start: 2014

REACTIONS (2)
  - Laryngitis [Not Recovered/Not Resolved]
  - Hypertension [Not Recovered/Not Resolved]
